FAERS Safety Report 4269918-7 (Version None)
Quarter: 2004Q1

REPORT INFORMATION
  Report Type: 
  Country: None (occurrence: None)
  Receive Date: 20040112
  Receipt Date: 20031229
  Transmission Date: 20041129
  Serious: Yes (Other)
  Sender: FDA-Public Use
  Company Number: US-JNJFOC-20031200645

PATIENT
  Age: 47 Year
  Sex: Female
  Weight: 90.7194 kg

DRUGS (10)
  1. REMICADE [Suspect]
     Indication: RHEUMATOID ARTHRITIS
     Dosage: SEE IMAGE
     Route: 042
     Dates: start: 20010101
  2. REMICADE [Suspect]
     Indication: RHEUMATOID ARTHRITIS
     Dosage: SEE IMAGE
     Route: 042
     Dates: start: 20031125
  3. SYNTHROID [Concomitant]
  4. ZOLOFT [Concomitant]
  5. FLEXORIL (CYCLOBENZAPRINE HYDROCHLORIDE) [Concomitant]
  6. KLONOPIN [Concomitant]
  7. NAPROXEN [Concomitant]
  8. ADVAIR (SERETIDE MITE) [Concomitant]
  9. PREDNISONE [Concomitant]
  10. METHOTREXATE [Concomitant]

REACTIONS (14)
  - APHONIA [None]
  - CHRONIC OBSTRUCTIVE AIRWAYS DISEASE [None]
  - DEPRESSION [None]
  - DIFFICULTY IN WALKING [None]
  - DYSSTASIA [None]
  - FALL [None]
  - FATIGUE [None]
  - FOOT FRACTURE [None]
  - HEPATIC ENZYME INCREASED [None]
  - HYPERSOMNIA [None]
  - HYPOTHYROIDISM [None]
  - MEMORY IMPAIRMENT [None]
  - MUSCLE RUPTURE [None]
  - WEIGHT INCREASED [None]
